FAERS Safety Report 26140075 (Version 1)
Quarter: 2025Q4

REPORT INFORMATION
  Report Type: Spontaneous
  Country: US (occurrence: None)
  Receive Date: 20251209
  Receipt Date: 20251209
  Transmission Date: 20260118
  Serious: Yes (Other)
  Sender: FDA-CTU
  Company Number: None

PATIENT
  Age: 34 Year
  Sex: Male
  Weight: 83.7 kg

DRUGS (1)
  1. TIRZEPATIDE [Suspect]
     Active Substance: TIRZEPATIDE
     Dosage: ONCE WEEKLY
     Dates: start: 20251101, end: 20251102

REACTIONS (3)
  - Intestinal obstruction [None]
  - Palpitations [None]
  - Near death experience [None]

NARRATIVE: CASE EVENT DATE: 20251101
